FAERS Safety Report 16895423 (Version 1)
Quarter: 2019Q4

REPORT INFORMATION
  Report Type: Spontaneous
  Country: GB (occurrence: GB)
  Receive Date: 20191008
  Receipt Date: 20191008
  Transmission Date: 20200122
  Serious: Yes (Disabling, Other)
  Sender: FDA-Public Use
  Company Number: GB-MYLANLABS-2019M1092818

PATIENT
  Age: 57 Year
  Sex: Female
  Weight: 108 kg

DRUGS (2)
  1. SERTRALINE [Suspect]
     Active Substance: SERTRALINE HYDROCHLORIDE
     Indication: DEPRESSION
     Dosage: 50 MILLIGRAM
     Route: 048
     Dates: start: 20190408, end: 20190503
  2. CITALOPRAM [Suspect]
     Active Substance: CITALOPRAM HYDROBROMIDE
     Indication: DEPRESSION
     Dosage: 20 MILLIGRAM
     Route: 048
     Dates: start: 20120117

REACTIONS (2)
  - Condition aggravated [Recovered/Resolved]
  - Urticarial vasculitis [Recovered/Resolved]

NARRATIVE: CASE EVENT DATE: 20120912
